FAERS Safety Report 18375097 (Version 2)
Quarter: 2020Q4

REPORT INFORMATION
  Report Type: Spontaneous
  Country: US (occurrence: US)
  Receive Date: 20201013
  Receipt Date: 20201019
  Transmission Date: 20210114
  Serious: Yes (Death, Life-Threatening, Other)
  Sender: FDA-Public Use
  Company Number: US-AMGEN-USASP2020163092

PATIENT

DRUGS (4)
  1. DOXORUBICIN [Concomitant]
     Active Substance: DOXORUBICIN
     Indication: SYNOVIAL SARCOMA
     Dosage: 30 MILLIGRAM/SQ. METER (OVER FIVE MINUTES ON DAY ONE)
     Route: 042
     Dates: start: 1994
  2. MESNA. [Concomitant]
     Active Substance: MESNA
     Indication: SYNOVIAL SARCOMA
     Dosage: 750 MILLIGRAM/SQ. METER (VER 15 MINUTES BEFORE IFOSFAMIDE AND REPEATED FOUR AND EIGHT HOUR LATER)
     Route: 042
     Dates: start: 1994
  3. FILGRASTIM [Suspect]
     Active Substance: FILGRASTIM
     Indication: NEUTROPENIA
     Dosage: 5 MICROGRAM/KILOGRAM, QD ( DAILY FOR 14 DAYS)
     Route: 058
     Dates: start: 1994
  4. IFOSFAMIDE. [Concomitant]
     Active Substance: IFOSFAMIDE
     Indication: SYNOVIAL SARCOMA
     Dosage: 3750 MILLIGRAM/SQ. METER (OVER 4 HOUR)
     Route: 042
     Dates: start: 1994

REACTIONS (5)
  - Death [Fatal]
  - Neutropenia [Unknown]
  - Therapy non-responder [Unknown]
  - Sepsis [Fatal]
  - Myelosuppression [Unknown]
